FAERS Safety Report 6215986-2 (Version None)
Quarter: 2009Q2

REPORT INFORMATION
  Report Type: 
  Country: None (occurrence: None)
  Receive Date: 20090605
  Receipt Date: 20090601
  Transmission Date: 20091009
  Serious: Yes (Death, Hospitalization)
  Sender: FDA-Public Use
  Company Number: GB-BRISTOL-MYERS SQUIBB COMPANY-14648083

PATIENT
  Age: 69 Year
  Sex: Male

DRUGS (8)
  1. METFORMIN HCL [Suspect]
     Indication: DIABETES MELLITUS
     Route: 048
     Dates: start: 20090201, end: 20090512
  2. ASPIRIN [Concomitant]
     Route: 048
  3. FERROUS SULFATE TAB [Concomitant]
     Route: 048
  4. FRUSEMIDE [Concomitant]
     Route: 048
  5. QUETIAPINE FUMARATE [Concomitant]
     Dates: end: 20090511
  6. RAMIPRIL [Concomitant]
     Route: 048
     Dates: end: 20090501
  7. SIMVASTATIN [Concomitant]
     Route: 048
  8. SPIRONOLACTONE [Concomitant]
     Route: 048
     Dates: end: 20090430

REACTIONS (5)
  - ACIDOSIS [None]
  - BLOOD GLUCOSE INCREASED [None]
  - BLOOD LACTIC ACID INCREASED [None]
  - BODY TEMPERATURE DECREASED [None]
  - LEFT VENTRICULAR FAILURE [None]
